FAERS Safety Report 4881341-0 (Version None)
Quarter: 2005Q4

REPORT INFORMATION
  Report Type: 
  Country: None (occurrence: None)
  Receive Date: 20051212
  Receipt Date: 20051107
  Transmission Date: 20060501
  Serious: No
  Sender: FDA-Public Use
  Company Number: 2005-02320

PATIENT
  Age: 70 Year
  Sex: Male
  Weight: 72.1 kg

DRUGS (5)
  1. VELCADE [Suspect]
     Indication: MULTIPLE MYELOMA
     Dosage: 1.30 MG/M2, 2/WEEK, IV BOLUS
     Route: 040
     Dates: start: 20051101, end: 20051104
  2. DECADRON [Concomitant]
  3. NORVASC [Concomitant]
  4. PROTONIX [Concomitant]
  5. GLYBURIDE [Concomitant]

REACTIONS (1)
  - WHITE BLOOD CELL COUNT DECREASED [None]
